FAERS Safety Report 4445209-6 (Version None)
Quarter: 2004Q3

REPORT INFORMATION
  Report Type: 
  Country: None (occurrence: None)
  Receive Date: 20040819
  Receipt Date: 20031107
  Transmission Date: 20050211
  Serious: Yes (Other)
  Sender: FDA-Public Use
  Company Number: 2003040617

PATIENT
  Sex: Male

DRUGS (3)
  1. NORVASC [Suspect]
     Indication: HYPERTENSION
     Dosage: ORAL
     Route: 048
     Dates: start: 20030727
  2. LABETALOL HYDROCHLORIDE [Suspect]
     Indication: HYPERTENSION
     Dosage: (BID), ORAL
     Route: 048
     Dates: start: 20030727, end: 20030830
  3. IRBESARTAN (IRBESARTAN) [Suspect]
     Indication: HYPERTENSION
     Dosage: ORAL
     Route: 048
     Dates: start: 20030727

REACTIONS (2)
  - HEPATITIS [None]
  - HYPOTENSION [None]
